FAERS Safety Report 19065030 (Version 2)
Quarter: 2021Q1

REPORT INFORMATION
  Report Type: Spontaneous
  Country: VN (occurrence: VN)
  Receive Date: 20210326
  Receipt Date: 20210329
  Transmission Date: 20210420
  Serious: Yes (Death)
  Sender: FDA-Public Use
  Company Number: VN-B.BRAUN MEDICAL INC.-2108506

PATIENT
  Age: 3 Year
  Sex: Male

DRUGS (3)
  1. ORAL ANTIBIOTIC [Concomitant]
  2. LACTATED RINGERS SOLUTION [Suspect]
     Active Substance: CALCIUM CHLORIDE\POTASSIUM CHLORIDE\SODIUM CHLORIDE\SODIUM LACTATE
     Indication: HYPOPHAGIA
     Route: 042
     Dates: start: 20210313, end: 20210314
  3. GLUCOSE 5% [Concomitant]
     Active Substance: DEXTROSE
     Route: 042
     Dates: start: 20210313, end: 20210314

REACTIONS (4)
  - Chills [None]
  - Pyrexia [None]
  - Tremor [None]
  - Cyanosis [None]

NARRATIVE: CASE EVENT DATE: 20210313
